FAERS Safety Report 20106068 (Version 1)
Quarter: 2021Q4

REPORT INFORMATION
  Report Type: Spontaneous
  Country: US (occurrence: US)
  Receive Date: 20211124
  Receipt Date: 20211124
  Transmission Date: 20220303
  Serious: Yes (Hospitalization, Other)
  Sender: FDA-Public Use
  Company Number: US-LUPIN PHARMACEUTICALS INC.-2021-22876

PATIENT
  Sex: Male

DRUGS (1)
  1. POTASSIUM [Suspect]
     Active Substance: POTASSIUM
     Indication: Hypokalaemia
     Dosage: 340 MILLIEQUIVALENT
     Route: 065

REACTIONS (1)
  - Hyperkalaemia [Recovered/Resolved]
